FAERS Safety Report 5060940-X (Version None)
Quarter: 2006Q3

REPORT INFORMATION
  Report Type: 
  Country: None (occurrence: None)
  Receive Date: 20060721
  Receipt Date: 20060711
  Transmission Date: 20061208
  Serious: Yes (Hospitalization)
  Sender: FDA-Public Use
  Company Number: 2006BI009836

PATIENT
  Age: 60 Year
  Sex: Male

DRUGS (2)
  1. ZEVALIN [Suspect]
     Dosage: 1X;IV
     Route: 042
     Dates: start: 20060705, end: 20060705
  2. RITUXIMAB [Concomitant]

REACTIONS (5)
  - ACUTE RESPIRATORY DISTRESS SYNDROME [None]
  - CARDIAC FAILURE CONGESTIVE [None]
  - MENTAL STATUS CHANGES [None]
  - METABOLIC DISORDER [None]
  - RENAL FAILURE ACUTE [None]
